FAERS Safety Report 8138038-3 (Version None)
Quarter: 2012Q1

REPORT INFORMATION
  Report Type: 
  Country: None (occurrence: None)
  Receive Date: 20120215
  Receipt Date: 20120213
  Transmission Date: 20120608
  Serious: Yes (Other)
  Sender: FDA-Public Use
  Company Number: US-PFIZER INC-2012038515

PATIENT
  Sex: Female
  Weight: 68.027 kg

DRUGS (2)
  1. CHANTIX [Suspect]
     Dosage: 1 MG, 2X/DAY
     Route: 048
     Dates: start: 20120201, end: 20120212
  2. CHANTIX [Suspect]
     Indication: SMOKING CESSATION THERAPY
     Dosage: 0.5 MG, DAILY
     Route: 048
     Dates: start: 20120201, end: 20120201

REACTIONS (6)
  - APHAGIA [None]
  - STOMATITIS [None]
  - VOMITING [None]
  - HYPOTENSION [None]
  - NAUSEA [None]
  - HEADACHE [None]
